FAERS Safety Report 8083128-7 (Version None)
Quarter: 2012Q1

REPORT INFORMATION
  Report Type: 
  Country: None (occurrence: None)
  Receive Date: 20120130
  Receipt Date: 20120118
  Transmission Date: 20120608
  Serious: Yes (Hospitalization, Other)
  Sender: FDA-Public Use
  Company Number: GB-GILEAD-2011-0046835

PATIENT
  Sex: Male

DRUGS (17)
  1. HEPSERA [Suspect]
     Indication: HEPATIC CIRRHOSIS
     Dosage: 10MG PER DAY
     Route: 048
     Dates: start: 20060501
  2. LAMIVUDINE [Suspect]
     Dosage: 50MG PER DAY
     Route: 048
     Dates: start: 20111102
  3. CHICORY [Concomitant]
     Dosage: 4IUAX PER DAY
     Route: 048
     Dates: start: 20000501
  4. BACOPA MONNIERI [Concomitant]
  5. GINGER                             /01646602/ [Concomitant]
  6. TERMINALIA ARJUNA [Concomitant]
     Dosage: 4IUAX PER DAY
     Route: 048
     Dates: start: 20000501
  7. LAMIVUDINE [Suspect]
     Indication: HEPATIC CIRRHOSIS
     Dosage: 100MG PER DAY
     Route: 048
     Dates: start: 20010101, end: 20111101
  8. URSO                               /00465701/ [Concomitant]
     Dosage: 400MG PER DAY
     Route: 048
     Dates: start: 20000501
  9. LIVACT                             /01504901/ [Concomitant]
     Dosage: 4IUAX PER DAY
     Route: 048
     Dates: start: 20000501
  10. LANSOPRAZOLE [Concomitant]
     Dosage: 15MG PER DAY
     Route: 048
     Dates: start: 20070301, end: 20100901
  11. DIOVAN [Concomitant]
     Dosage: 80MG PER DAY
     Route: 048
     Dates: start: 20110801
  12. CENTELLA ASIATICA [Concomitant]
     Dosage: 4IUAX PER DAY
     Route: 048
     Dates: start: 20000501
  13. HEPSERA [Suspect]
     Dosage: 5MG PER DAY
     Route: 048
     Dates: start: 20111102
  14. EMBLICA OFFICINALIS [Concomitant]
  15. BOERHAVIA [Concomitant]
     Dosage: 4IUAX PER DAY
     Route: 048
     Dates: start: 20000501
  16. FERROMIA                           /00023520/ [Concomitant]
     Dosage: 50MG PER DAY
     Route: 048
     Dates: start: 20100301, end: 20100901
  17. ANDROGRAPHIS PANICULATA [Concomitant]

REACTIONS (9)
  - BLOOD CREATININE INCREASED [None]
  - LARGE INTESTINAL HAEMORRHAGE [None]
  - ANGIODYSPLASIA [None]
  - SPLENOMEGALY [None]
  - RENAL IMPAIRMENT [None]
  - PANCYTOPENIA [None]
  - VARICES OESOPHAGEAL [None]
  - ANAEMIA [None]
  - GLOMERULAR FILTRATION RATE DECREASED [None]
